FAERS Safety Report 8852255 (Version 1)
Quarter: 2012Q4

REPORT INFORMATION
  Report Type: 
  Country: US (occurrence: US)
  Receive Date: 20121022
  Receipt Date: 20121022
  Transmission Date: 20130627
  Serious: No
  Sender: FDA-Public Use
  Company Number: US-MYLANLABS-2012S1006470

PATIENT
  Age: 75 Year
  Sex: Female

DRUGS (9)
  1. CARVEDILOL [Suspect]
     Indication: HYPERTENSION
     Route: 048
     Dates: start: 20120210, end: 20120229
  2. SYNTHROID [Concomitant]
     Route: 048
  3. BENICAR [Concomitant]
     Route: 048
  4. PACERONE [Concomitant]
     Route: 048
  5. DIGOXIN [Concomitant]
     Route: 048
  6. ASA [Concomitant]
     Route: 048
  7. COUMADIN [Concomitant]
     Route: 048
  8. VITAMIN B 6 [Concomitant]
  9. VITAMIN D [Concomitant]

REACTIONS (1)
  - Alopecia [Not Recovered/Not Resolved]
